FAERS Safety Report 12577929 (Version 1)
Quarter: 2016Q3

REPORT INFORMATION
  Report Type: Other
  Country: DE (occurrence: DE)
  Receive Date: 20160721
  Receipt Date: 20160721
  Transmission Date: 20161109
  Serious: No
  Sender: FDA-Public Use
  Company Number: DE-LUPIN PHARMACEUTICALS INC.-E2B_00005154

PATIENT
  Age: 55 Year
  Sex: Male
  Weight: 95 kg

DRUGS (5)
  1. BRIVIACT [Suspect]
     Active Substance: BRIVARACETAM
     Indication: EPILEPSY
     Route: 048
     Dates: start: 20160222
  2. VALPROAT 300 [Suspect]
     Active Substance: VALPROATE SODIUM
     Indication: EPILEPSY
     Route: 048
     Dates: start: 1991
  3. LAMOTRIGINE. [Suspect]
     Active Substance: LAMOTRIGINE
     Indication: EPILEPSY
     Route: 048
     Dates: start: 1991
  4. BRIVIACT [Suspect]
     Active Substance: BRIVARACETAM
     Indication: EPILEPSY
     Route: 048
     Dates: start: 20160213, end: 20160221
  5. LAMOTRIGINE. [Suspect]
     Active Substance: LAMOTRIGINE
     Route: 048

REACTIONS (3)
  - Illusion [Unknown]
  - Hypersomnia [Unknown]
  - Compulsions [Unknown]

NARRATIVE: CASE EVENT DATE: 20160217
